FAERS Safety Report 5373022-4 (Version None)
Quarter: 2007Q2

REPORT INFORMATION
  Report Type: 
  Country: None (occurrence: None)
  Receive Date: 20070626
  Receipt Date: 20070611
  Transmission Date: 20071010
  Serious: Yes (Hospitalization)
  Sender: FDA-Public Use
  Company Number: 2007RR-08100

PATIENT
  Age: 76 Year
  Sex: Female

DRUGS (13)
  1. LISINOPRIL [Suspect]
     Indication: HYPERTENSION
     Dosage: 10 MG, QD, 20 MG, QD
     Dates: start: 19900101
  2. LISINOPRIL [Suspect]
     Indication: HYPERTENSION
     Dosage: 10 MG, QD, 20 MG, QD
     Dates: start: 19960721
  3. METOPROLOL SUCCINATE [Concomitant]
  4. NIZATIDINE [Concomitant]
  5. PROPOXYPHENE HYDROCHLORIDE [Concomitant]
  6. ZOLPIDEM TARTRATE [Concomitant]
  7. DICLOFENAC [Concomitant]
  8. PARACETAMOL (ACETAMINOPHEN/PARACETAMOL) [Concomitant]
  9. CODEINE PHOSPHATE (CODEINE) [Concomitant]
  10. NAPROXEN [Concomitant]
  11. PREDNISOLONE [Concomitant]
  12. RANITIDINE [Concomitant]
  13. TEMAZEPAM [Concomitant]

REACTIONS (1)
  - INAPPROPRIATE ANTIDIURETIC HORMONE SECRETION [None]
